FAERS Safety Report 17994957 (Version 1)
Quarter: 2020Q3

REPORT INFORMATION
  Report Type: Spontaneous
  Country: FR (occurrence: FR)
  Receive Date: 20200708
  Receipt Date: 20200708
  Transmission Date: 20201103
  Serious: Yes (Death, Hospitalization)
  Sender: FDA-Public Use
  Company Number: FR-PFIZER INC-2020260293

PATIENT
  Age: 46 Year
  Sex: Female

DRUGS (3)
  1. DOXORUBICIN [Suspect]
     Active Substance: DOXORUBICIN
     Indication: LUNG NEOPLASM MALIGNANT
     Dosage: 88 MG, DAILY
     Route: 042
     Dates: start: 20200518, end: 20200518
  2. VINCRISTINE SULFATE. [Suspect]
     Active Substance: VINCRISTINE SULFATE
     Indication: LUNG NEOPLASM MALIGNANT
     Dosage: 2.46 MG, DAILY
     Route: 042
     Dates: start: 20200518, end: 20200518
  3. CYCLOPHOSPHAMIDE. [Suspect]
     Active Substance: CYCLOPHOSPHAMIDE
     Indication: LUNG NEOPLASM MALIGNANT
     Dosage: 1760 MG, DAILY
     Route: 042
     Dates: start: 20200518, end: 20200518

REACTIONS (1)
  - Haematemesis [Fatal]

NARRATIVE: CASE EVENT DATE: 20200519
